FAERS Safety Report 19503613 (Version 2)
Quarter: 2021Q3

REPORT INFORMATION
  Report Type: Spontaneous
  Country: DE (occurrence: DE)
  Receive Date: 20210707
  Receipt Date: 20210811
  Transmission Date: 20211014
  Serious: Yes (Hospitalization, Other)
  Sender: FDA-Public Use
  Company Number: NVSC2021DE148399

PATIENT
  Age: 7 Decade
  Sex: Male

DRUGS (7)
  1. METHOTREXATE. [Suspect]
     Active Substance: METHOTREXATE
     Dosage: 10 MG
     Route: 065
     Dates: start: 20190816
  2. METHOTREXATE. [Suspect]
     Active Substance: METHOTREXATE
     Dosage: 7.5 MG
     Route: 058
     Dates: start: 20200707
  3. METHOTREXATE. [Suspect]
     Active Substance: METHOTREXATE
     Dosage: 22.5 MG
     Route: 065
     Dates: start: 20170401
  4. SIMPONI [Suspect]
     Active Substance: GOLIMUMAB
     Indication: PSORIATIC ARTHROPATHY
     Dosage: 50 MG, Q4W
     Route: 058
     Dates: start: 20180320, end: 20210215
  5. NAPROXEN. [Concomitant]
     Active Substance: NAPROXEN
     Indication: PSORIATIC ARTHROPATHY
     Dosage: 500 MG
     Route: 065
     Dates: start: 20180214, end: 20180430
  6. METHOTREXATE. [Suspect]
     Active Substance: METHOTREXATE
     Indication: PSORIATIC ARTHROPATHY
     Dosage: 7.5 MG, QW
     Route: 058
     Dates: start: 20190816
  7. METHOTREXATE. [Suspect]
     Active Substance: METHOTREXATE
     Dosage: 20 MG
     Route: 065
     Dates: start: 20170401, end: 20190510

REACTIONS (11)
  - Thrombocytopenia [Unknown]
  - Dyspepsia [Unknown]
  - Transaminases increased [Unknown]
  - Diabetic neuropathy [Unknown]
  - Sciatica [Unknown]
  - Oral herpes [Unknown]
  - Renal failure [Unknown]
  - Spinal osteoarthritis [Recovered/Resolved]
  - Diarrhoea [Unknown]
  - Gastrointestinal infection [Unknown]
  - Osteoarthritis [Unknown]

NARRATIVE: CASE EVENT DATE: 20190131
